FAERS Safety Report 5216699-6 (Version None)
Quarter: 2007Q1

REPORT INFORMATION
  Report Type: 
  Country: None (occurrence: None)
  Receive Date: 20061130
  Receipt Date: 20060825
  Transmission Date: 20070707
  Serious: Yes (Hospitalization)
  Sender: FDA-Public Use
  Company Number: US200603004586

PATIENT
  Sex: Male
  Weight: 78 kg

DRUGS (2)
  1. ZYPREXA [Suspect]
     Dosage: 10 MG, EACH EVENING
     Dates: start: 19981001, end: 20010701
  2. DIVALPROEX SODIUM [Concomitant]

REACTIONS (3)
  - BLOOD CHOLESTEROL INCREASED [None]
  - DIABETES MELLITUS NON-INSULIN-DEPENDENT [None]
  - HYPERTENSION [None]
